FAERS Safety Report 24842904 (Version 1)
Quarter: 2025Q1

REPORT INFORMATION
  Report Type: Spontaneous
  Country: NO (occurrence: NO)
  Receive Date: 20250115
  Receipt Date: 20250115
  Transmission Date: 20250409
  Serious: Yes (Hospitalization)
  Sender: AMGEN
  Company Number: NO-AMGEN-NORSP2025004642

PATIENT
  Age: 28 Year
  Sex: Female
  Weight: 67 kg

DRUGS (2)
  1. ADALIMUMAB [Suspect]
     Active Substance: ADALIMUMAB
     Indication: Gastrointestinal inflammation
     Dosage: 40 MILLIGRAM, 1 DF QWK
     Route: 058
     Dates: start: 202401
  2. ESOMEPRAZOLE [Concomitant]
     Active Substance: ESOMEPRAZOLE
     Indication: Prophylaxis
     Dosage: 20 MILLIGRAM 1 DF QD
     Dates: start: 202308

REACTIONS (1)
  - Cyst rupture [Not Recovered/Not Resolved]

NARRATIVE: CASE EVENT DATE: 20240601
